FAERS Safety Report 7779604-4 (Version None)
Quarter: 2011Q3

REPORT INFORMATION
  Report Type: 
  Country: None (occurrence: None)
  Receive Date: 20110927
  Receipt Date: 20110916
  Transmission Date: 20111222
  Serious: Yes (Other)
  Sender: FDA-Public Use
  Company Number: US-AMGEN-USASP2011025107

PATIENT
  Age: 12 Year
  Sex: Male
  Weight: 38 kg

DRUGS (11)
  1. SENSIPAR [Suspect]
     Indication: HYPERPARATHYROIDISM SECONDARY
     Dosage: 60 MG, QD
     Route: 048
     Dates: start: 20101006, end: 20110513
  2. EPOGEN [Concomitant]
     Indication: PRODUCT USED FOR UNKNOWN INDICATION
     Dosage: 70000 UNIT, UNK
  3. CALCITRIOL [Concomitant]
     Dosage: 0.25 MUG, UNK
  4. ATENOLOL [Concomitant]
     Dosage: 25 MG, UNK
  5. CALCIUM CARBONATE [Concomitant]
  6. NEPHROVITE [Concomitant]
  7. MIRALAX [Concomitant]
     Dosage: 17 G, UNK
  8. FLUOXETINE [Concomitant]
     Dosage: 10 MG, UNK
  9. LISINOPRIL [Concomitant]
     Dosage: 40 MG, UNK
  10. AMLODIPINE [Concomitant]
     Dosage: 5 MG, UNK
  11. RENAGEL [Concomitant]
     Dosage: 800 MG, UNK

REACTIONS (3)
  - FRACTURE NONUNION [None]
  - FALL [None]
  - HIP FRACTURE [None]
